FAERS Safety Report 17725486 (Version 1)
Quarter: 2020Q2

REPORT INFORMATION
  Report Type: Spontaneous
  Country: CA (occurrence: CA)
  Receive Date: 20200429
  Receipt Date: 20200429
  Transmission Date: 20200714
  Serious: Yes (Hospitalization)
  Sender: FDA-Public Use
  Company Number: CA-SAMSUNG BIOEPIS-SB-2020-14294

PATIENT
  Age: 30 Year
  Sex: Female
  Weight: 122 kg

DRUGS (1)
  1. INFLIXIMAB [Suspect]
     Active Substance: INFLIXIMAB
     Indication: RHEUMATOID ARTHRITIS
     Route: 042

REACTIONS (4)
  - Off label use [Recovered/Resolved]
  - Hepatic function abnormal [Recovered/Resolved]
  - Pneumonia legionella [Recovered/Resolved]
  - Inappropriate schedule of product administration [Recovered/Resolved]
